FAERS Safety Report 9390375 (Version 1)
Quarter: 2013Q3

REPORT INFORMATION
  Report Type: Spontaneous
  Country: GB (occurrence: US)
  Receive Date: 20130709
  Receipt Date: 20130709
  Transmission Date: 20140515
  Serious: No
  Sender: FDA-Public Use
  Company Number: GB-009507513-1307USA000017

PATIENT
  Sex: Male

DRUGS (8)
  1. REBETOL [Suspect]
     Indication: CHRONIC HEPATITIS C
     Dosage: 1000 MG QD
     Dates: start: 20130211
  2. REBETOL [Suspect]
     Dosage: 800 MG, QD
  3. REBETOL [Suspect]
     Dosage: DIVIDED DOSE 400 MG, 1 IN 1 DAY
  4. PEGASYS [Suspect]
     Indication: CHRONIC HEPATITIS C
     Dosage: 180 MICROGRAM, QW, PREFILLED SYRINGE
     Dates: start: 20130211
  5. VICTRELIS [Suspect]
     Indication: CHRONIC HEPATITIS C
  6. METFORMIN [Concomitant]
  7. ASPIRIN [Concomitant]
  8. ETOLAC (ETODOLAC) [Concomitant]

REACTIONS (4)
  - Fatigue [Unknown]
  - Irritability [Recovering/Resolving]
  - Oral disorder [Unknown]
  - Anaemia [Recovered/Resolved]
